FAERS Safety Report 9841730 (Version 3)
Quarter: 2014Q2

REPORT INFORMATION
  Report Type: Spontaneous
  Country: DE (occurrence: DE)
  Receive Date: 20140124
  Receipt Date: 20140429
  Transmission Date: 20141212
  Serious: Yes (Hospitalization)
  Sender: FDA-Public Use
  Company Number: DE-JNJFOC-20131203155

PATIENT
  Sex: Male

DRUGS (8)
  1. STELARA [Suspect]
     Indication: PUSTULAR PSORIASIS
     Route: 058
     Dates: start: 20130911, end: 20131015
  2. XARELTO [Concomitant]
     Dosage: IN THE MORNING
     Route: 065
  3. PREDNISOLONE [Concomitant]
     Dosage: IN THE MORNING
     Route: 065
  4. PANTOPRAZOLE [Concomitant]
     Dosage: AT NIGHT
     Route: 065
  5. TORASEMID [Concomitant]
     Dosage: 1 IN THE MORNING AND 1 IN THE AFTERNOON
     Route: 065
  6. NOVODIGAL [Concomitant]
     Dosage: 2 IN THE MORNING
     Route: 065
  7. VALSARTAN [Concomitant]
     Dosage: HALF IN THE MORNING
     Route: 065
  8. VERAPAMIL [Concomitant]
     Dosage: HALF IN THE MORNING AND ONE AT NIGHT
     Route: 065

REACTIONS (2)
  - Drug effect decreased [Unknown]
  - Off label use [Unknown]
